FAERS Safety Report 7540039-0 (Version None)
Quarter: 2011Q2

REPORT INFORMATION
  Report Type: 
  Country: None (occurrence: None)
  Receive Date: 20110610
  Receipt Date: 20110606
  Transmission Date: 20111010
  Serious: Yes (Death, Hospitalization)
  Sender: FDA-Public Use
  Company Number: US-AMGEN-USASP2011029037

PATIENT
  Age: 39 Year
  Sex: Male
  Weight: 140 kg

DRUGS (10)
  1. ZEMPLAR [Concomitant]
  2. FOSRENOL [Concomitant]
  3. LISINOPRIL [Concomitant]
  4. SENSIPAR [Suspect]
     Indication: HYPERPARATHYROIDISM SECONDARY
     Dosage: 30 MG, QD
     Dates: start: 20101201
  5. FERROUS SULFATE TAB [Concomitant]
  6. EPOGEN [Suspect]
     Indication: RENAL FAILURE CHRONIC
     Dosage: 4000 IU, Q3WK
  7. HEPARIN [Concomitant]
  8. DIALYVITE [Concomitant]
  9. METOPROLOL SUCCINATE [Concomitant]
  10. FELODIPINE [Concomitant]

REACTIONS (4)
  - BLOOD PRESSURE DECREASED [None]
  - TREATMENT NONCOMPLIANCE [None]
  - HOSPITALISATION [None]
  - DEATH [None]
